FAERS Safety Report 6840164-3 (Version None)
Quarter: 2010Q2

REPORT INFORMATION
  Report Type: 
  Country: None (occurrence: None)
  Receive Date: 20100629
  Receipt Date: 20100301
  Transmission Date: 20101027
  Serious: No
  Sender: FDA-Public Use
  Company Number: US-WYE-H13936510

PATIENT
  Age: 78 Year
  Sex: Female

DRUGS (2)
  1. PRISTIQ [Suspect]
     Indication: OBSESSIVE-COMPULSIVE DISORDER
     Dosage: 50 MG 1X PER DAY, ORAL
     Route: 048
     Dates: start: 20100227
  2. KLONOPIN [Concomitant]

REACTIONS (1)
  - UNEVALUABLE EVENT [None]
